FAERS Safety Report 15899005 (Version 2)
Quarter: 2019Q1

REPORT INFORMATION
  Report Type: Spontaneous
  Country: US (occurrence: US)
  Receive Date: 20190201
  Receipt Date: 20190225
  Transmission Date: 20190417
  Serious: Yes (Other)
  Sender: FDA-Public Use
  Company Number: US-HIKMA PHARMACEUTICALS USA INC.-US-H14001-19-00556

PATIENT
  Age: 67 Year
  Sex: Male

DRUGS (3)
  1. ACTHAR [Suspect]
     Active Substance: CORTICOTROPIN
     Indication: PRODUCT USED FOR UNKNOWN INDICATION
     Route: 065
  2. PREDNISONE. [Suspect]
     Active Substance: PREDNISONE
     Route: 065
     Dates: start: 201806
  3. PREDNISONE. [Suspect]
     Active Substance: PREDNISONE
     Indication: NEPHROTIC SYNDROME
     Route: 065
     Dates: start: 201711

REACTIONS (8)
  - Paralysis [Unknown]
  - Muscular weakness [Unknown]
  - Steroid diabetes [Unknown]
  - Atrial flutter [Unknown]
  - Fluid retention [Unknown]
  - Dyspnoea [Unknown]
  - Polyuria [Unknown]
  - Herpes zoster [Unknown]
